FAERS Safety Report 7759718-5 (Version None)
Quarter: 2011Q3

REPORT INFORMATION
  Report Type: 
  Country: None (occurrence: None)
  Receive Date: 20110915
  Receipt Date: 20110907
  Transmission Date: 20111222
  Serious: Yes (Hospitalization, Disabling)
  Sender: FDA-Public Use
  Company Number: 2011SP023675

PATIENT
  Age: 42 Year
  Sex: Female

DRUGS (3)
  1. MARVELON (DESOGESTREL/ETHINYLESTRADIOL /00570801/) [Suspect]
     Indication: CONTRACEPTION
     Dosage: 1 DF; QD; PO
     Route: 048
     Dates: end: 20091201
  2. COZAAR [Concomitant]
  3. METOPROLOL SUCCINATE [Concomitant]

REACTIONS (6)
  - PLEURISY [None]
  - KIDNEY INFECTION [None]
  - PNEUMONIA [None]
  - PULMONARY THROMBOSIS [None]
  - CALCULUS URETERIC [None]
  - ABDOMINAL INFECTION [None]
